FAERS Safety Report 26124169 (Version 1)
Quarter: 2025Q4

REPORT INFORMATION
  Report Type: Spontaneous
  Country: US (occurrence: US)
  Receive Date: 20251205
  Receipt Date: 20251205
  Transmission Date: 20260119
  Serious: No
  Sender: VERO BIOTECH
  Company Number: US-VEROBIOTECH-2025USVEROSPO00317

PATIENT
  Age: 8 Month
  Sex: Female

DRUGS (1)
  1. GENOSYL [Suspect]
     Active Substance: NITRIC OXIDE
     Indication: Product used for unknown indication

REACTIONS (1)
  - Overdose [Unknown]
